FAERS Safety Report 5269745-8 (Version None)
Quarter: 2007Q1

REPORT INFORMATION
  Report Type: 
  Country: None (occurrence: None)
  Receive Date: 20070320
  Receipt Date: 20070312
  Transmission Date: 20070707
  Serious: Yes (Hospitalization)
  Sender: FDA-Public Use
  Company Number: 2007CG00416

PATIENT
  Age: 30024 Day
  Sex: Male

DRUGS (6)
  1. TENORMIN [Suspect]
     Route: 048
     Dates: end: 20070119
  2. SEROPRAM [Suspect]
     Route: 048
     Dates: start: 20070115, end: 20070119
  3. PREVISCAN [Concomitant]
     Route: 048
  4. TRIATEC [Concomitant]
     Route: 048
  5. VASTAREL [Concomitant]
  6. DIOVENOR [Concomitant]

REACTIONS (1)
  - HYPONATRAEMIA [None]
